FAERS Safety Report 23011991 (Version 4)
Quarter: 2023Q4

REPORT INFORMATION
  Report Type: Report from Study
  Country: NL (occurrence: NL)
  Receive Date: 20230929
  Receipt Date: 20231201
  Transmission Date: 20240109
  Serious: Yes (Other)
  Sender: FDA-Public Use
  Company Number: NL-ABBVIE-5428159

PATIENT
  Age: 76 Year
  Sex: Male

DRUGS (10)
  1. CARBIDOPA\LEVODOPA [Suspect]
     Active Substance: CARBIDOPA\LEVODOPA
     Indication: Parkinson^s disease
     Route: 050
     Dates: start: 20191028
  2. CARBIDOPA\LEVODOPA [Suspect]
     Active Substance: CARBIDOPA\LEVODOPA
     Dosage: MD: 15.7ML, CD: 3.4ML/H, ED: 4.0ML, DURATION AT 16 HOURS.
     Route: 050
     Dates: start: 20230620
  3. CLOZAPINE [Concomitant]
     Active Substance: CLOZAPINE
     Indication: Hallucination
     Dosage: IF NEEDED, ONE TABLET PER DAY?FORM STRENGTH WAS 6.25 MILLIGRAM.
  4. EXELON [Concomitant]
     Active Substance: RIVASTIGMINE TARTRATE
     Indication: Confusional state
     Dosage: STICKY PLASTER
  5. DOMPERIDONE [Concomitant]
     Active Substance: DOMPERIDONE
     Indication: Gastrointestinal disorder
     Dosage: TIME INTERVAL: 0.33333333 DAYS
  6. ROTIGOTINE [Concomitant]
     Active Substance: ROTIGOTINE
     Indication: Parkinson^s disease
     Dosage: FORM STRENGTH WAS TWO MILLIGRAM
  7. DOMPERIDONE [Concomitant]
     Active Substance: DOMPERIDONE
     Indication: Gastrointestinal hypomotility
     Dosage: TIME INTERVAL: 0.33333333 DAYS: CITRATE FREE.?FORM STRENGTH WAS 10 MILLIGRAM.
  8. EXELON [Concomitant]
     Active Substance: RIVASTIGMINE TARTRATE
     Indication: Confusional state
     Dosage: STICKY PLASTER.
  9. POLYETHYLENE GLYCOLS [Concomitant]
     Active Substance: POLYETHYLENE GLYCOLS
     Indication: Bowel movement irregularity
  10. NEUPRO [Concomitant]
     Active Substance: ROTIGOTINE
     Indication: Product used for unknown indication

REACTIONS (22)
  - Depressed level of consciousness [Not Recovered/Not Resolved]
  - Dysphagia [Not Recovered/Not Resolved]
  - Loss of personal independence in daily activities [Not Recovered/Not Resolved]
  - Hypersomnia [Not Recovered/Not Resolved]
  - Daydreaming [Not Recovered/Not Resolved]
  - Therapeutic product effect incomplete [Unknown]
  - Somnolence [Not Recovered/Not Resolved]
  - Fibroma [Not Recovered/Not Resolved]
  - Choking [Not Recovered/Not Resolved]
  - Wheelchair user [Not Recovered/Not Resolved]
  - Memory impairment [Unknown]
  - Stoma site discharge [Not Recovered/Not Resolved]
  - Unevaluable event [Not Recovered/Not Resolved]
  - On and off phenomenon [Not Recovered/Not Resolved]
  - Adverse reaction [Not Recovered/Not Resolved]
  - Speech disorder [Not Recovered/Not Resolved]
  - Hypophagia [Not Recovered/Not Resolved]
  - General physical health deterioration [Not Recovered/Not Resolved]
  - Stoma site erythema [Not Recovered/Not Resolved]
  - Disturbance in attention [Unknown]
  - Judgement impaired [Unknown]
  - Bowel movement irregularity [Recovered/Resolved]
